FAERS Safety Report 4871716-8 (Version None)
Quarter: 2005Q4

REPORT INFORMATION
  Report Type: 
  Country: None (occurrence: None)
  Receive Date: 20051230
  Receipt Date: 20051220
  Transmission Date: 20060501
  Serious: No
  Sender: FDA-Public Use
  Company Number: 2005-136162-NL

PATIENT
  Age: 45 Year
  Sex: Male

DRUGS (3)
  1. DEXAMETHASONE TAB [Suspect]
     Indication: CHOROIDITIS
     Dosage: 3 MG
     Route: 048
  2. DEXAMETHASONE TAB [Suspect]
     Indication: CHOROIDITIS
     Dosage: 2 MG
     Route: 048
  3. DEXAMETHASONE TAB [Suspect]
     Indication: CHOROIDITIS
     Dosage: 2 MG BW
     Route: 057

REACTIONS (1)
  - DETACHMENT OF RETINAL PIGMENT EPITHELIUM [None]
